FAERS Safety Report 9614584 (Version 2)
Quarter: 2013Q4

REPORT INFORMATION
  Report Type: Spontaneous
  Country: ES (occurrence: ES)
  Receive Date: 20131011
  Receipt Date: 20131011
  Transmission Date: 20140711
  Serious: Yes (Other)
  Sender: FDA-Public Use
  Company Number: PHHY2013ES110256

PATIENT
  Age: 52 Year
  Sex: Female

DRUGS (2)
  1. TASIGNA [Suspect]
     Dosage: 300 MG, Q12H
     Route: 048
     Dates: start: 20130919
  2. TASIGNA [Suspect]
     Dosage: 150 MG, QD
     Route: 048
     Dates: start: 20130925

REACTIONS (6)
  - Thrombocytopenia [Not Recovered/Not Resolved]
  - Anaemia [Unknown]
  - Neutropenia [Unknown]
  - Splenomegaly [Unknown]
  - Leukocytosis [Unknown]
  - Pancytopenia [Not Recovered/Not Resolved]
